FAERS Safety Report 21876199 (Version 1)
Quarter: 2023Q1

REPORT INFORMATION
  Report Type: Report from Study
  Country: US (occurrence: US)
  Receive Date: 20230118
  Receipt Date: 20230118
  Transmission Date: 20230418
  Serious: No
  Sender: FDA-Public Use
  Company Number: US-ABBVIE-4241414

PATIENT
  Sex: Female

DRUGS (1)
  1. HUMIRA [Suspect]
     Active Substance: ADALIMUMAB
     Indication: Hidradenitis
     Dosage: CITRATE FREE?ONSET DATE FOR EVENT OF FLU, BODY ACHES AND FEELS TERRIBLE WAS 2022.
     Route: 058
     Dates: start: 202211

REACTIONS (3)
  - Feeling abnormal [Unknown]
  - Influenza [Not Recovered/Not Resolved]
  - Pain [Unknown]
